FAERS Safety Report 20199343 (Version 1)
Quarter: 2021Q4

REPORT INFORMATION
  Report Type: Report from Study
  Country: US (occurrence: US)
  Receive Date: 20211217
  Receipt Date: 20211217
  Transmission Date: 20220303
  Serious: Yes (Other)
  Sender: FDA-Public Use
  Company Number: US-BRISTOL-MYERS SQUIBB COMPANY-BMS-2021-135922

PATIENT
  Age: 71 Year
  Sex: Male
  Weight: 104.32 kg

DRUGS (3)
  1. APIXABAN [Suspect]
     Active Substance: APIXABAN
     Indication: Cerebrovascular accident prophylaxis
     Dosage: 5 MILLIGRAM, BID
     Route: 048
     Dates: start: 201509
  2. APIXABAN [Suspect]
     Active Substance: APIXABAN
     Indication: Cardiac disorder
  3. LOSARTAN [Concomitant]
     Active Substance: LOSARTAN
     Indication: Product used for unknown indication
     Dosage: UNK
     Route: 065

REACTIONS (8)
  - Anuria [Recovered/Resolved]
  - Neuropathy peripheral [Unknown]
  - Wound haemorrhage [Unknown]
  - Accidental overdose [Unknown]
  - Diarrhoea [Unknown]
  - Constipation [Unknown]
  - Haemorrhoids [Unknown]
  - Diabetic foot [Unknown]

NARRATIVE: CASE EVENT DATE: 20200101
